FAERS Safety Report 19457073 (Version 5)
Quarter: 2022Q1

REPORT INFORMATION
  Report Type: Spontaneous
  Country: ES (occurrence: ES)
  Receive Date: 20210624
  Receipt Date: 20220113
  Transmission Date: 20220424
  Serious: Yes (Other)
  Sender: FDA-Public Use
  Company Number: ES-009507513-2106ESP004576

PATIENT
  Age: 66 Year
  Sex: Female

DRUGS (2)
  1. CEFTOLOZANE SULFATE\TAZOBACTAM SODIUM [Suspect]
     Active Substance: CEFTOLOZANE SULFATE\TAZOBACTAM SODIUM
     Indication: Pneumonia pseudomonal
     Dosage: 2G+1G EVERY 8 HOURS
  2. MEROPENEM [Concomitant]
     Active Substance: MEROPENEM
     Indication: Pneumonia pseudomonal
     Dosage: 2 GRAM, EVERY 8 HOURS

REACTIONS (1)
  - Pathogen resistance [Unknown]
